FAERS Safety Report 4881014-4 (Version None)
Quarter: 2005Q4

REPORT INFORMATION
  Report Type: 
  Country: None (occurrence: None)
  Receive Date: 20051223
  Receipt Date: 20050926
  Transmission Date: 20060501
  Serious: No
  Sender: FDA-Public Use
  Company Number: 05P-163-0311865-00

PATIENT
  Sex: Female
  Weight: 78.9259 kg

DRUGS (7)
  1. HUMIRA [Suspect]
     Indication: RHEUMATOID ARTHRITIS
     Dosage: 40 MG, 1 IN 2 WK, SUBCUTANEOUS
     Route: 058
     Dates: start: 20050601
  2. CHLALORZONAZON [Concomitant]
  3. TYLENOL SINUS MEDICATION [Concomitant]
  4. MODAFINIL [Concomitant]
  5. HYDROCODONE BITARTRATE [Concomitant]
  6. MULTIVITAMINS (SENIOR) [Concomitant]
  7. RESTASSIS [Concomitant]

REACTIONS (2)
  - PAIN IN EXTREMITY [None]
  - PRURITUS GENERALISED [None]
